FAERS Safety Report 5203753-8 (Version None)
Quarter: 2007Q1

REPORT INFORMATION
  Report Type: 
  Country: None (occurrence: None)
  Receive Date: 20070109
  Receipt Date: 20070109
  Transmission Date: 20070707
  Serious: Yes (Hospitalization)
  Sender: FDA-Public Use
  Company Number: None

PATIENT
  Age: 2 Year
  Sex: Female
  Weight: 14.9687 kg

DRUGS (1)
  1. ZOFRAN [Suspect]
     Indication: GASTROENTERITIS VIRAL
     Dosage: 4 MG FOUR TIME DAILY ORALLY
     Route: 048
     Dates: start: 20061211, end: 20061214

REACTIONS (5)
  - ASTHENIA [None]
  - DEHYDRATION [None]
  - GRAND MAL CONVULSION [None]
  - LACRIMATION DECREASED [None]
  - VOMITING [None]
